FAERS Safety Report 9166065 (Version 2)
Quarter: 2013Q1

REPORT INFORMATION
  Report Type: Spontaneous
  Country: GB (occurrence: None)
  Receive Date: 20130301
  Receipt Date: 20130328
  Transmission Date: 20140127
  Serious: Yes (Hospitalization)
  Sender: FDA-Public Use
  Company Number: 2013MZ000011

PATIENT
  Age: 48 Year
  Sex: Female

DRUGS (3)
  1. XEOMIN (BOTULINUM TOXIN TYPE A) [Suspect]
     Indication: SKIN WRINKLING
     Route: 030
     Dates: start: 20130124, end: 20130124
  2. XEOMIN (BOTULINUM TOXIN TYPE A) [Suspect]
     Indication: SKIN WRINKLING
     Route: 030
     Dates: start: 20130124, end: 20130124
  3. XEOMIN (BOTULINUM TOXIN TYPE A) [Suspect]
     Indication: OFF LABEL USE
     Route: 030
     Dates: start: 20130124, end: 20130124

REACTIONS (1)
  - Arrhythmia [None]
